FAERS Safety Report 8419463-X (Version None)
Quarter: 2012Q2

REPORT INFORMATION
  Report Type: 
  Country: None (occurrence: None)
  Receive Date: 20120607
  Receipt Date: 20120525
  Transmission Date: 20120825
  Serious: Yes (Disabling)
  Sender: FDA-Public Use
  Company Number: US-ENDO PHARMACEUTICALS INC.-DELA20110006

PATIENT
  Sex: Male
  Weight: 63.56 kg

DRUGS (6)
  1. DELATESTRYL [Suspect]
     Indication: HYPOGONADISM
     Dosage: UNK
     Route: 030
     Dates: start: 19660101, end: 20090701
  2. PREDNISONE [Concomitant]
     Indication: ADRENAL DISORDER
     Route: 065
  3. DEXAMETHASONE [Concomitant]
     Indication: ADRENOCORTICAL INSUFFICIENCY ACUTE
     Dosage: UNK
     Route: 065
  4. CORTISOL [Concomitant]
     Indication: ADRENOCORTICAL INSUFFICIENCY ACUTE
     Dosage: UNK
     Route: 065
  5. THYROID MEDICINE [Concomitant]
     Indication: ADRENAL DISORDER
     Dosage: UNK
     Route: 065
  6. FLORINEF [Concomitant]
     Indication: PRODUCT USED FOR UNKNOWN INDICATION
     Route: 065

REACTIONS (5)
  - BLINDNESS UNILATERAL [None]
  - MENINGIOMA BENIGN [None]
  - POLYCYTHAEMIA [None]
  - ISCHAEMIC STROKE [None]
  - DEAFNESS [None]
